FAERS Safety Report 7743846-4 (Version None)
Quarter: 2011Q3

REPORT INFORMATION
  Report Type: 
  Country: None (occurrence: None)
  Receive Date: 20110912
  Receipt Date: 20110831
  Transmission Date: 20111222
  Serious: Yes (Hospitalization)
  Sender: FDA-Public Use
  Company Number: US-GLAXOSMITHKLINE-A0897094A

PATIENT
  Age: 42 Year
  Sex: Female

DRUGS (2)
  1. AVANDIA [Suspect]
     Indication: DIABETES MELLITUS
     Route: 048
     Dates: start: 20060101
  2. AVANDAMET [Suspect]
     Indication: DIABETES MELLITUS
     Route: 048
     Dates: start: 20040109, end: 20060901

REACTIONS (4)
  - MYOCARDIAL INFARCTION [None]
  - CORONARY ARTERIAL STENT INSERTION [None]
  - FLUID RETENTION [None]
  - DYSPNOEA [None]
